FAERS Safety Report 5134722-4 (Version None)
Quarter: 2006Q4

REPORT INFORMATION
  Report Type: 
  Country: None (occurrence: None)
  Receive Date: 20060831
  Receipt Date: 20050802
  Transmission Date: 20070319
  Serious: No
  Sender: FDA-Public Use
  Company Number: 245431

PATIENT
  Age: 68 Year
  Sex: Male
  Weight: 68 kg

DRUGS (4)
  1. MIXTARD HUMAN 70/30 [Suspect]
     Indication: DIABETES MELLITUS
     Dosage: 29 IU, QD, SUBCUTANEOUS
     Route: 058
  2. PROCARDIA [Concomitant]
  3. HYDROCHLOROTHIAZIDE [Concomitant]
  4. IMIPRAMINE [Concomitant]

REACTIONS (1)
  - HYPOGLYCAEMIA [None]
